FAERS Safety Report 7609488-6 (Version None)
Quarter: 2011Q3

REPORT INFORMATION
  Report Type: 
  Country: None (occurrence: None)
  Receive Date: 20110714
  Receipt Date: 20110707
  Transmission Date: 20111222
  Serious: Yes (Other)
  Sender: FDA-Public Use
  Company Number: PHHY2011IN60787

PATIENT
  Age: 5 Year
  Sex: Male

DRUGS (6)
  1. PREDNISOLONE [Concomitant]
     Dosage: 2 MG/KG, QD
  2. ISONIAZID [Suspect]
     Indication: MENINGITIS TUBERCULOUS
     Dosage: 5 MG/KG, QD
     Route: 048
  3. PHENYTOIN [Concomitant]
     Dosage: 10 MG/KG, QD
     Route: 048
  4. RIFAMPICIN [Suspect]
     Indication: MENINGITIS TUBERCULOUS
     Dosage: 10 MG/KG, QD
     Route: 048
  5. ETHAMBUTOL HYDROCHLORIDE [Suspect]
     Indication: MENINGITIS TUBERCULOUS
     Dosage: 20 MG/KG, QD
     Route: 048
  6. PYRAZINAMIDE [Suspect]
     Indication: MENINGITIS TUBERCULOUS
     Dosage: 25 MG/KG, QD
     Route: 048

REACTIONS (6)
  - OPTIC DISCS BLURRED [None]
  - OPTIC NEURITIS [None]
  - OPTIC DISC HYPERAEMIA [None]
  - PAPILLOEDEMA [None]
  - BLINDNESS [None]
  - PARADOXICAL DRUG REACTION [None]
